FAERS Safety Report 6379506-4 (Version None)
Quarter: 2009Q3

REPORT INFORMATION
  Report Type: 
  Country: None (occurrence: None)
  Receive Date: 20090928
  Receipt Date: 20090922
  Transmission Date: 20100115
  Serious: Yes (Hospitalization, Other)
  Sender: FDA-Public Use
  Company Number: US-TEVA-210273USA

PATIENT
  Sex: Male

DRUGS (2)
  1. PANTOPRAZOLE SODIUM [Suspect]
     Indication: GASTROINTESTINAL DISORDER
     Route: 048
     Dates: start: 20090908, end: 20090914
  2. MELATONIN [Concomitant]
     Indication: SLEEP DISORDER
     Dosage: ONCE DAILY AT BEDTIME
     Route: 048

REACTIONS (4)
  - ABNORMAL DREAMS [None]
  - HEADACHE [None]
  - SUICIDAL IDEATION [None]
  - VIOLENCE-RELATED SYMPTOM [None]
